APPROVED DRUG PRODUCT: FERRLECIT
Active Ingredient: SODIUM FERRIC GLUCONATE COMPLEX
Strength: EQ 62.5MG IRON/5ML (EQ 12.5MG IRON/ML)
Dosage Form/Route: INJECTABLE;INJECTION
Application: N020955 | Product #001 | TE Code: AB
Applicant: SANOFI AVENTIS US LLC
Approved: Feb 18, 1999 | RLD: Yes | RS: Yes | Type: RX